FAERS Safety Report 4675272-9 (Version None)
Quarter: 2005Q2

REPORT INFORMATION
  Report Type: 
  Country: None (occurrence: None)
  Receive Date: 20050527
  Receipt Date: 20050519
  Transmission Date: 20051028
  Serious: Yes (Other)
  Sender: FDA-Public Use
  Company Number: US-JNJFOC-20050505544

PATIENT
  Sex: Male
  Weight: 77.11 kg

DRUGS (5)
  1. REMICADE [Suspect]
     Route: 042
  2. FOLIC ACID [Concomitant]
  3. CLARINEX [Concomitant]
  4. NASONEX [Concomitant]
  5. FLAX SEED OIL [Concomitant]

REACTIONS (2)
  - COCCIDIOIDOMYCOSIS [None]
  - RIFT VALLEY FEVER [None]
